FAERS Safety Report 5727951-X (Version None)
Quarter: 2008Q2

REPORT INFORMATION
  Report Type: 
  Country: None (occurrence: None)
  Receive Date: 20080505
  Receipt Date: 20080423
  Transmission Date: 20081010
  Serious: Yes (Other)
  Sender: FDA-Public Use
  Company Number: JP-PFIZER INC-2008032539

PATIENT
  Age: 32 Year
  Sex: Male

DRUGS (1)
  1. GABAPEN [Suspect]
     Indication: EPILEPSY
     Dosage: DAILY DOSE:600MG
     Route: 048
     Dates: start: 20070609, end: 20080115

REACTIONS (1)
  - RHABDOMYOLYSIS [None]
